FAERS Safety Report 10072556 (Version 4)
Quarter: 2016Q2

REPORT INFORMATION
  Report Type: Spontaneous
  Country: US (occurrence: US)
  Receive Date: 20140411
  Receipt Date: 20160408
  Transmission Date: 20160815
  Serious: Yes (Other)
  Sender: FDA-Public Use
  Company Number: US-009507513-1404USA006183

PATIENT
  Sex: Male

DRUGS (2)
  1. PROSCAR [Suspect]
     Active Substance: FINASTERIDE
     Indication: BENIGN PROSTATIC HYPERPLASIA
     Dosage: 5 MG, QD
     Route: 048
     Dates: start: 20050711, end: 200607
  2. FINASTERIDE. [Suspect]
     Active Substance: FINASTERIDE
     Indication: BENIGN PROSTATIC HYPERPLASIA
     Dosage: 5 MG, QD
     Route: 048
     Dates: start: 20060719, end: 201111

REACTIONS (25)
  - Gastrointestinal disorder [Unknown]
  - Hiatus hernia [Unknown]
  - Fall [Unknown]
  - Contusion [Unknown]
  - Haemorrhoids [Unknown]
  - Breast mass [Unknown]
  - Haematochezia [Unknown]
  - Vasectomy [Unknown]
  - Viral infection [Unknown]
  - Erectile dysfunction [Unknown]
  - Depression [Unknown]
  - Ligament sprain [Unknown]
  - Hepatic steatosis [Unknown]
  - Hepatic hypertrophy [Unknown]
  - Bladder outlet obstruction [Unknown]
  - Prostate cancer [Recovering/Resolving]
  - Gynaecomastia [Unknown]
  - Drug ineffective [Unknown]
  - Renal cyst [Unknown]
  - Umbilical hernia [Unknown]
  - Gastroenteritis viral [Unknown]
  - Sleep apnoea syndrome [Unknown]
  - Nasopharyngitis [Unknown]
  - Obesity [Unknown]
  - Hypertension [Unknown]

NARRATIVE: CASE EVENT DATE: 20050725
